FAERS Safety Report 22236339 (Version 1)
Quarter: 2023Q2

REPORT INFORMATION
  Report Type: Other
  Country: US (occurrence: None)
  Receive Date: 20230420
  Receipt Date: 20230420
  Transmission Date: 20230722
  Serious: No
  Sender: FDA-Public Use
  Company Number: US-ROCHE-3071475

PATIENT
  Age: 63 Year
  Sex: Male

DRUGS (6)
  1. AVASTIN [Suspect]
     Active Substance: BEVACIZUMAB
     Indication: Macular oedema
     Route: 050
  2. AVASTIN [Suspect]
     Active Substance: BEVACIZUMAB
     Indication: Neovascularisation
  3. AVASTIN [Suspect]
     Active Substance: BEVACIZUMAB
     Indication: Diabetic retinopathy
  4. EYLEA [Concomitant]
     Active Substance: AFLIBERCEPT
     Indication: Macular oedema
  5. EYLEA [Concomitant]
     Active Substance: AFLIBERCEPT
     Indication: Neovascularisation
  6. EYLEA [Concomitant]
     Active Substance: AFLIBERCEPT
     Indication: Diabetic retinopathy

REACTIONS (3)
  - Off label use [Unknown]
  - Off label use [Unknown]
  - No adverse event [Unknown]
